FAERS Safety Report 7289452-X (Version None)
Quarter: 2011Q1

REPORT INFORMATION
  Report Type: 
  Country: None (occurrence: None)
  Receive Date: 20110211
  Receipt Date: 20110203
  Transmission Date: 20110831
  Serious: Yes (Hospitalization, Other)
  Sender: FDA-Public Use
  Company Number: US-B.I. PHARMACEUTICALS,INC./RIDGEFIELD-2011-BP-02003BP

PATIENT
  Age: 65 Year
  Sex: Female
  Weight: 57.1 kg

DRUGS (11)
  1. DIOVAN [Concomitant]
  2. DICLOFENAC [Suspect]
     Indication: PAIN IN EXTREMITY
     Route: 048
     Dates: start: 20090301, end: 20090401
  3. CITALOPRAM (CITALOPRAM) [Concomitant]
  4. CELEBREX [Concomitant]
  5. VICODIN [Concomitant]
  6. DIAZEPAM [Concomitant]
     Indication: PANIC DISORDER
  7. DIAZEPAM [Concomitant]
     Indication: ANXIETY
  8. UNSPECIFIED VITAMIN [Concomitant]
  9. MISOPROSTOL [Suspect]
     Indication: PAIN IN EXTREMITY
     Dosage: 400 MCG
     Route: 048
     Dates: start: 20090301, end: 20090401
  10. MOBIC [Suspect]
     Indication: PAIN IN EXTREMITY
     Dosage: 15 MG
     Dates: start: 20090301, end: 20090401
  11. SIMVASTATIN [Concomitant]

REACTIONS (6)
  - MALAISE [None]
  - GENERAL PHYSICAL CONDITION ABNORMAL [None]
  - PAIN [None]
  - VOMITING [None]
  - DIZZINESS [None]
  - FIBROMYALGIA [None]
